FAERS Safety Report 19945261 (Version 1)
Quarter: 2021Q4

REPORT INFORMATION
  Report Type: Spontaneous
  Country: IE (occurrence: GB)
  Receive Date: 20211012
  Receipt Date: 20211012
  Transmission Date: 20220303
  Serious: Yes (Disabling)
  Sender: FDA-Public Use
  Company Number: IE-SUN PHARMACEUTICAL INDUSTRIES LTD-2021RR-296999

PATIENT
  Age: 24 Year
  Sex: Male

DRUGS (7)
  1. RISPERIDONE [Suspect]
     Active Substance: RISPERIDONE
     Indication: Product used for unknown indication
     Dosage: UNK
     Route: 048
  2. CIPRALEX [Concomitant]
     Active Substance: ESCITALOPRAM OXALATE
     Indication: Antidepressant therapy
     Dosage: 10 MILLIGRAM, QD (10 MILLIGRAM, DAILY)
     Route: 048
     Dates: start: 201507, end: 201509
  3. TRAZODONE [Concomitant]
     Active Substance: TRAZODONE HYDROCHLORIDE
     Indication: Antidepressant therapy
     Dosage: UNK (50MG INITAILLY INCREASED TO 100MG DAILY THEN REDUCED TO 50MG BEFORE STOPPING)
     Route: 048
     Dates: start: 2015, end: 201507
  4. TEMAZEPAM [Concomitant]
     Active Substance: TEMAZEPAM
     Indication: Poor quality sleep
     Dosage: 10 MILLIGRAM, QD (10 MILLIGRAM, DAILY)
     Route: 048
  5. CITALOPRAM [Concomitant]
     Active Substance: CITALOPRAM HYDROBROMIDE
     Indication: Product used for unknown indication
     Dosage: 10 MILLIGRAM (10 MILLIGRAM, INITIALLY)
     Route: 065
     Dates: start: 201507
  6. SERTRALINE [Concomitant]
     Active Substance: SERTRALINE HYDROCHLORIDE
     Indication: Antidepressant therapy
     Dosage: UNK (50MG INITALLY THEN 100MG ())
     Route: 048
     Dates: start: 2014
  7. MIRTAZAPINE [Concomitant]
     Active Substance: MIRTAZAPINE
     Indication: Antidepressant therapy
     Dosage: UNK (7.5MG - UPTITRATED TO 45MG DAILY THEN REDUCED DOWN TO STOP ())
     Route: 048
     Dates: start: 2014, end: 2015

REACTIONS (3)
  - Physical disability [Unknown]
  - Somnolence [Unknown]
  - Sedation [Unknown]
